FAERS Safety Report 12631762 (Version 2)
Quarter: 2016Q3

REPORT INFORMATION
  Report Type: Spontaneous
  Country: US (occurrence: US)
  Receive Date: 20160808
  Receipt Date: 20160808
  Transmission Date: 20161109
  Serious: Yes (Hospitalization)
  Sender: FDA-Public Use
  Company Number: US-BEH-2016060930

PATIENT
  Sex: Female

DRUGS (1)
  1. HIZENTRA [Suspect]
     Active Substance: HUMAN IMMUNOGLOBULIN G
     Indication: PRODUCT USED FOR UNKNOWN INDICATION

REACTIONS (7)
  - Urticaria [Unknown]
  - Myalgia [Unknown]
  - Anaphylactic reaction [Unknown]
  - Throat tightness [Unknown]
  - Dyspnoea [Unknown]
  - Hangover [Unknown]
  - Headache [Unknown]
